FAERS Safety Report 4667664-9 (Version None)
Quarter: 2005Q2

REPORT INFORMATION
  Report Type: 
  Country: None (occurrence: None)
  Receive Date: 20050520
  Receipt Date: 20050518
  Transmission Date: 20051028
  Serious: Yes (Death, Hospitalization)
  Sender: FDA-Public Use
  Company Number: US-ABBOTT-05P-163-0300774-00

PATIENT
  Sex: Male

DRUGS (34)
  1. RITONAVIR SOFT GELATIN CAPSULES [Suspect]
     Indication: HIV INFECTION
     Route: 048
     Dates: start: 20030603
  2. TIPRANAVIR [Concomitant]
     Indication: HIV INFECTION
     Route: 048
     Dates: start: 20030603
  3. LEVOCARNITINE [Concomitant]
     Indication: MEDICAL DIET
     Dates: start: 19991201
  4. FOLTX [Concomitant]
     Indication: VITAMIN SUPPLEMENTATION
  5. RAMIPRIL [Concomitant]
     Indication: HYPERTENSION
  6. ZOCOR [Concomitant]
     Indication: BLOOD CHOLESTEROL INCREASED
  7. NICOTINIC ACID [Concomitant]
     Indication: THROMBOSIS PROPHYLAXIS
  8. ASPIRIN [Concomitant]
     Indication: THROMBOSIS PROPHYLAXIS
  9. GLIPIZIDE [Concomitant]
     Indication: DIABETES MELLITUS
  10. ACTOS [Concomitant]
     Indication: DIABETES MELLITUS
  11. INSULIN HUMAN [Concomitant]
     Indication: DIABETES MELLITUS
  12. ISOPHANE INSULIN [Concomitant]
     Indication: DIABETES MELLITUS
  13. VITAMIN B COMPLEX CAP [Concomitant]
     Indication: VITAMIN SUPPLEMENTATION
  14. ASCORBIC ACID [Concomitant]
     Indication: VITAMIN SUPPLEMENTATION
  15. CALCIUM GLUCONATE [Concomitant]
     Indication: MINERAL SUPPLEMENTATION
  16. ALPHA LIPOIC ACID [Concomitant]
     Indication: MALABSORPTION
  17. BORAGE OIL [Concomitant]
     Indication: MALABSORPTION
  18. MYRTILLUS [Concomitant]
     Indication: VISUAL DISTURBANCE
  19. LAMIVUDINE + ZIDOVUDINE [Concomitant]
     Indication: HIV INFECTION
  20. TENOFOVIR [Concomitant]
     Indication: HIV INFECTION
  21. DIDANOSINE [Concomitant]
     Indication: HIV INFECTION
  22. TRANDOLAPRIL [Concomitant]
     Indication: DRUG USE FOR UNKNOWN INDICATION
  23. CARVEDILOL [Concomitant]
     Indication: DRUG USE FOR UNKNOWN INDICATION
  24. FUROSEMIDE [Concomitant]
     Indication: DRUG USE FOR UNKNOWN INDICATION
  25. SPIRONOLACTONE [Concomitant]
     Indication: DRUG USE FOR UNKNOWN INDICATION
  26. POTASSIUM CHLORIDE [Concomitant]
     Indication: DRUG USE FOR UNKNOWN INDICATION
  27. SPIROLACTONE [Concomitant]
     Indication: DRUG USE FOR UNKNOWN INDICATION
  28. IRON [Concomitant]
     Indication: DRUG USE FOR UNKNOWN INDICATION
  29. ENOXAPARIN SODIUM [Concomitant]
     Indication: DRUG USE FOR UNKNOWN INDICATION
  30. METOPROLOL [Concomitant]
     Indication: DRUG USE FOR UNKNOWN INDICATION
  31. NITROGLYCERIN [Concomitant]
     Indication: DRUG USE FOR UNKNOWN INDICATION
  32. LISINOPRIL [Concomitant]
     Indication: DRUG USE FOR UNKNOWN INDICATION
  33. PREDNISOLONE [Concomitant]
     Indication: DRUG USE FOR UNKNOWN INDICATION
  34. LORATADINE [Concomitant]
     Indication: POSTNASAL DRIP
     Dates: start: 20030723

REACTIONS (6)
  - DEATH [None]
  - FALL [None]
  - GALLBLADDER ENLARGEMENT [None]
  - HIP FRACTURE [None]
  - POSTOPERATIVE RESPIRATORY DISTRESS [None]
  - RENAL FAILURE ACUTE [None]
